FAERS Safety Report 5499829-0 (Version None)
Quarter: 2007Q4

REPORT INFORMATION
  Report Type: 
  Country: None (occurrence: None)
  Receive Date: 20071026
  Receipt Date: 20071015
  Transmission Date: 20080405
  Serious: Yes (Life-Threatening, Hospitalization, Other)
  Sender: FDA-Public Use
  Company Number: IE-PFIZER INC-2007081270

PATIENT
  Sex: Female
  Weight: 70 kg

DRUGS (11)
  1. CARDURA [Suspect]
     Indication: HYPERTENSION
     Route: 048
     Dates: start: 20070828, end: 20070922
  2. CARDURA [Suspect]
  3. PERINDOPRIL ERBUMINE [Suspect]
  4. LOSEC [Suspect]
  5. GLUCOPHAGE [Concomitant]
  6. LIPITOR [Concomitant]
  7. ACETYLSALICYLIC ACID SRT [Concomitant]
  8. ELTROXIN [Concomitant]
     Route: 048
  9. ALBUMIN (HUMAN) [Concomitant]
     Route: 048
  10. BONIVA [Concomitant]
     Route: 048
  11. LOPID [Concomitant]

REACTIONS (3)
  - ANGIOEDEMA [None]
  - PHARYNGEAL OEDEMA [None]
  - SWOLLEN TONGUE [None]
